FAERS Safety Report 5755377-1 (Version None)
Quarter: 2008Q2

REPORT INFORMATION
  Report Type: 
  Country: None (occurrence: None)
  Receive Date: 20080529
  Receipt Date: 20080529
  Transmission Date: 20081010
  Serious: Yes (Other)
  Sender: FDA-Public Use
  Company Number: None

PATIENT
  Age: 5 Year
  Sex: Male
  Weight: 19.9583 kg

DRUGS (1)
  1. CLARITIN [Suspect]
     Indication: SEASONAL ALLERGY
     Dosage: 1 TEASPOON EVERY 24HRS PO
     Route: 048
     Dates: start: 20080506, end: 20080517

REACTIONS (3)
  - DYSPHEMIA [None]
  - DYSPNOEA [None]
  - SPEECH DISORDER [None]
